FAERS Safety Report 8062762-4 (Version None)
Quarter: 2012Q1

REPORT INFORMATION
  Report Type: 
  Country: None (occurrence: None)
  Receive Date: 20120118
  Receipt Date: 20120104
  Transmission Date: 20120608
  Serious: Yes (Hospitalization, Other)
  Sender: FDA-Public Use
  Company Number: 2012MA000233

PATIENT
  Sex: Female
  Weight: 83.9154 kg

DRUGS (28)
  1. ASPIRIN [Concomitant]
  2. EPTIFIBATIDE [Concomitant]
  3. POTASSIUM CHLORIDE [Concomitant]
  4. TAGAMET [Concomitant]
  5. VERSED [Concomitant]
  6. ZANTAC [Concomitant]
  7. NUBAIN [Concomitant]
  8. TENORMIN [Concomitant]
  9. ATENOLOL [Concomitant]
  10. ATIVAN [Concomitant]
  11. LASIX [Concomitant]
  12. ZYPREXA [Concomitant]
  13. LUNESTA [Concomitant]
  14. SODIUM CHLORIDE [Concomitant]
  15. ALBUTEROL [Concomitant]
  16. AMBIEN [Concomitant]
  17. NITRO-DUR [Concomitant]
  18. ISORDIL [Concomitant]
  19. PHENERGAN [Concomitant]
  20. ACETAMINOPHEN [Concomitant]
  21. VYTORIN [Concomitant]
  22. DIGOXIN [Suspect]
     Indication: PRODUCT USED FOR UNKNOWN INDICATION
     Dosage: 0.125 MG;QD;PO
     Route: 048
     Dates: start: 20080614, end: 20080701
  23. BENADRYL [Concomitant]
  24. COLACE [Concomitant]
  25. DARVOCET-N 50 [Concomitant]
  26. PLAVIX [Concomitant]
  27. STADOL [Concomitant]
  28. TOPAMAX [Concomitant]

REACTIONS (30)
  - PRESYNCOPE [None]
  - VOMITING [None]
  - NAUSEA [None]
  - ORTHOPNOEA [None]
  - BIPOLAR DISORDER [None]
  - PAIN IN EXTREMITY [None]
  - ELECTROCARDIOGRAM POOR R-WAVE PROGRESSION [None]
  - OEDEMA [None]
  - TOBACCO ABUSE [None]
  - HEPATITIS C [None]
  - CENTRAL OBESITY [None]
  - CHEST PAIN [None]
  - HYPERLIPIDAEMIA [None]
  - PALPITATIONS [None]
  - FATIGUE [None]
  - CYANOSIS [None]
  - ATRIOVENTRICULAR BLOCK FIRST DEGREE [None]
  - HYPERTENSION [None]
  - CARDIAC STRESS TEST ABNORMAL [None]
  - HYPOTENSION [None]
  - ELECTROCARDIOGRAM ST SEGMENT DEPRESSION [None]
  - DYSPNOEA [None]
  - ECG SIGNS OF MYOCARDIAL ISCHAEMIA [None]
  - ANGINA PECTORIS [None]
  - HYPERHIDROSIS [None]
  - OBSESSIVE-COMPULSIVE DISORDER [None]
  - DYSPNOEA EXERTIONAL [None]
  - CLUBBING [None]
  - BLOOD PRESSURE SYSTOLIC INCREASED [None]
  - CORONARY ARTERY OCCLUSION [None]
